FAERS Safety Report 9893665 (Version 1)
Quarter: 2014Q1

REPORT INFORMATION
  Report Type: Spontaneous
  Country: US (occurrence: US)
  Receive Date: 20140213
  Receipt Date: 20140213
  Transmission Date: 20141002
  Serious: Yes (Other)
  Sender: FDA-Public Use
  Company Number: US-TEVA-462207USA

PATIENT
  Sex: Female

DRUGS (9)
  1. PROAIR HFA [Suspect]
     Indication: ASTHMA
     Dates: start: 200712
  2. GENERIC SINGULAIR - MONTELUKAST [Suspect]
     Indication: ASTHMA
  3. SYMBICORT [Suspect]
     Indication: ASTHMA
  4. SPIRIVA [Suspect]
     Indication: ASTHMA
  5. UNSPECIFIED [Concomitant]
     Indication: HYPERSENSITIVITY
  6. UNSPECIFIED [Concomitant]
     Indication: SINUS DISORDER
  7. PRILOSEC [Concomitant]
     Indication: GASTROOESOPHAGEAL REFLUX DISEASE
  8. UNSPECIFIED [Concomitant]
     Indication: BLOOD PRESSURE ABNORMAL
  9. UNSPECIFIED [Concomitant]
     Indication: DIURETIC THERAPY

REACTIONS (10)
  - Depressed level of consciousness [Unknown]
  - Choking [Unknown]
  - Somnolence [Not Recovered/Not Resolved]
  - Hypersensitivity [Not Recovered/Not Resolved]
  - Sinus disorder [Not Recovered/Not Resolved]
  - Sinusitis [Unknown]
  - Cough [Not Recovered/Not Resolved]
  - Dyspnoea [Unknown]
  - Somnolence [Unknown]
  - Drug ineffective [Unknown]
